FAERS Safety Report 5272474-8 (Version None)
Quarter: 2007Q1

REPORT INFORMATION
  Report Type: 
  Country: None (occurrence: None)
  Receive Date: 20070322
  Receipt Date: 20030701
  Transmission Date: 20070707
  Serious: No
  Sender: FDA-Public Use
  Company Number: US-BRISTOL-MYERS SQUIBB COMPANY-12315867

PATIENT
  Age: 70 Year
  Sex: Female
  Weight: 62 kg

DRUGS (8)
  1. TRIAMCINOLONE ACETONIDE [Suspect]
     Indication: ARTHRALGIA
     Route: 030
     Dates: start: 20030623
  2. TRIAMTERENE AND HYDROCHLOROTHIAZIDE [Concomitant]
  3. IBUPROFEN [Concomitant]
  4. VALIUM [Concomitant]
  5. AMBIEN [Concomitant]
  6. CODEINE [Concomitant]
  7. VITAMINS [Concomitant]
  8. GLUCOSAMINE+CHONDROITIN+MSM [Concomitant]

REACTIONS (5)
  - BLOOD PRESSURE INCREASED [None]
  - EYE PAIN [None]
  - HEADACHE [None]
  - MANIA [None]
  - PHOTOSENSITIVITY REACTION [None]
